FAERS Safety Report 22176959 (Version 1)
Quarter: 2023Q2

REPORT INFORMATION
  Report Type: Spontaneous
  Country: JP (occurrence: JP)
  Receive Date: 20230405
  Receipt Date: 20230405
  Transmission Date: 20230721
  Serious: Yes (Hospitalization)
  Sender: FDA-Public Use
  Company Number: JP-DSJP-DSJ-2023-108092

PATIENT
  Age: 76 Year
  Sex: Male
  Weight: 77.7 kg

DRUGS (16)
  1. EDOXABAN TOSYLATE [Suspect]
     Active Substance: EDOXABAN TOSYLATE
     Indication: Atrial fibrillation
     Dosage: 60MG/DAY
     Route: 048
     Dates: start: 202204, end: 2022
  2. EDOXABAN TOSYLATE [Suspect]
     Active Substance: EDOXABAN TOSYLATE
     Dosage: 30MG/DAY
     Route: 048
     Dates: start: 2022, end: 2022
  3. WARFARIN POTASSIUM [Suspect]
     Active Substance: WARFARIN POTASSIUM
     Dosage: 1 MG, QD
     Route: 048
     Dates: start: 202211, end: 202211
  4. WARFARIN POTASSIUM [Suspect]
     Active Substance: WARFARIN POTASSIUM
     Dosage: 2.5 MG, QD
     Route: 048
     Dates: start: 202211, end: 202211
  5. WARFARIN POTASSIUM [Suspect]
     Active Substance: WARFARIN POTASSIUM
     Dosage: 3.0 MG, QD
     Route: 048
     Dates: start: 202211, end: 2022
  6. WARFARIN POTASSIUM [Suspect]
     Active Substance: WARFARIN POTASSIUM
     Dosage: 2.5 MG, QD
     Route: 048
     Dates: start: 202212, end: 202212
  7. WARFARIN POTASSIUM [Suspect]
     Active Substance: WARFARIN POTASSIUM
     Dosage: 1.75 MG, QD
     Route: 048
     Dates: start: 202212, end: 202212
  8. WARFARIN POTASSIUM [Suspect]
     Active Substance: WARFARIN POTASSIUM
     Dosage: 0.5 MG, QD
     Route: 048
     Dates: start: 202301, end: 202301
  9. WARFARIN POTASSIUM [Suspect]
     Active Substance: WARFARIN POTASSIUM
     Dosage: 0.75 MG, QD
     Route: 048
     Dates: start: 202301, end: 202301
  10. WARFARIN POTASSIUM [Suspect]
     Active Substance: WARFARIN POTASSIUM
     Dosage: 1 MG, QD
     Route: 048
     Dates: start: 202301
  11. TOLVAPTAN [Concomitant]
     Active Substance: TOLVAPTAN
     Dosage: 7.5 MG, QD, AFTER BREAKFAST
     Route: 048
  12. AZOSEMIDE [Concomitant]
     Active Substance: AZOSEMIDE
     Dosage: 60 MG, QD, AFTER BREAKFAST
     Route: 048
  13. CARVEDILOL [Concomitant]
     Active Substance: CARVEDILOL
     Dosage: 2.5 MG, BID, AFTER BREAKFAST AND DINNER
     Route: 048
  14. BENIDIPINE HYDROCHLORIDE [Concomitant]
     Active Substance: BENIDIPINE HYDROCHLORIDE
     Dosage: 8 MG, BID, AFTER BREAKFAST AND DINNER
     Route: 048
  15. PITAVASTATIN CALCIUM [Concomitant]
     Active Substance: PITAVASTATIN CALCIUM
     Dosage: 2 MG, QD, AFTER DINNER
     Route: 048
  16. ALLOPURINOL [Concomitant]
     Active Substance: ALLOPURINOL
     Dosage: 100 MG, QD, AFTER BREAKFAST
     Route: 048

REACTIONS (1)
  - Anticoagulant-related nephropathy [Recovered/Resolved]

NARRATIVE: CASE EVENT DATE: 20220801
